FAERS Safety Report 20719481 (Version 1)
Quarter: 2022Q2

REPORT INFORMATION
  Report Type: Report from Study
  Country: GB (occurrence: GB)
  Receive Date: 20220418
  Receipt Date: 20220418
  Transmission Date: 20220720
  Serious: Yes (Other)
  Sender: FDA-Public Use
  Company Number: GB-SAMSUNG BIOEPIS-SB-2022-03547

PATIENT
  Age: 64 Year
  Sex: Female

DRUGS (2)
  1. ETANERCEPT [Suspect]
     Active Substance: ETANERCEPT
     Indication: Rheumatoid arthritis
     Route: 058
     Dates: start: 20220208
  2. ETANERCEPT [Suspect]
     Active Substance: ETANERCEPT
     Indication: Juvenile idiopathic arthritis

REACTIONS (16)
  - Petit mal epilepsy [Recovered/Resolved]
  - Diabetes mellitus [Unknown]
  - Viral infection [Unknown]
  - Injection site pain [Recovered/Resolved]
  - Dizziness [Not Recovered/Not Resolved]
  - Depressed mood [Recovered/Resolved]
  - Feeling abnormal [Recovered/Resolved]
  - Diarrhoea [Unknown]
  - Vomiting [Unknown]
  - Pruritus [Not Recovered/Not Resolved]
  - Contusion [Not Recovered/Not Resolved]
  - Ill-defined disorder [Unknown]
  - Headache [Recovered/Resolved]
  - Asthma [Unknown]
  - Chronic obstructive pulmonary disease [Unknown]
  - Tachycardia [Unknown]

NARRATIVE: CASE EVENT DATE: 20220208
